FAERS Safety Report 9208636 (Version 2)
Quarter: 2015Q2

REPORT INFORMATION
  Report Type: Spontaneous
  Country: US (occurrence: US)
  Receive Date: 20130404
  Receipt Date: 20150417
  Transmission Date: 20150821
  Serious: Yes (Other)
  Sender: FDA-Public Use
  Company Number: US-PFIZER INC-2013102882

PATIENT
  Sex: Male
  Weight: 3.8 kg

DRUGS (2)
  1. AMPICILLIN SODIUM. [Suspect]
     Active Substance: AMPICILLIN SODIUM
     Dosage: 500 MG, UNK
     Route: 064
  2. DIPHENHYDRAMINE [Suspect]
     Active Substance: DIPHENHYDRAMINE
     Dosage: 50 MG, UNK
     Route: 064

REACTIONS (4)
  - Bradycardia [Unknown]
  - Arrhythmia neonatal [Unknown]
  - Maternal exposure during pregnancy [Unknown]
  - Premature baby [Unknown]
